FAERS Safety Report 20260426 (Version 1)
Quarter: 2021Q4

REPORT INFORMATION
  Report Type: Spontaneous
  Country: GB (occurrence: GB)
  Receive Date: 20211230
  Receipt Date: 20211230
  Transmission Date: 20220303
  Serious: Yes (Other)
  Sender: FDA-Public Use
  Company Number: GB-BAXTER-2021BAX042023

PATIENT

DRUGS (2)
  1. CALCIUM CL\MAGNESIUM CL\POTASSIUM CL\SODIUM BICAR\SODIUM CL\SODIUM PHO [Suspect]
     Active Substance: CALCIUM CL\MAGNESIUM CL\POTASSIUM CL\SODIUM BICAR\SODIUM CL\SODIUM PHOSPHATE,DIB
     Indication: Fluid replacement
     Route: 010
  2. BICARBONATE ION\CHLORIDE ION\DEXTROSE\LACTIC ACID\MAGNESIUM\POTASSIUM [Suspect]
     Active Substance: BICARBONATE ION\CHLORIDE ION\DEXTROSE\LACTIC ACID\MAGNESIUM\POTASSIUM
     Indication: Haemodialysis
     Route: 010

REACTIONS (3)
  - Haemorrhage [Unknown]
  - Product use issue [Unknown]
  - Device alarm issue [Unknown]
